FAERS Safety Report 7787184-2 (Version None)
Quarter: 2011Q3

REPORT INFORMATION
  Report Type: 
  Country: None (occurrence: None)
  Receive Date: 20110929
  Receipt Date: 20110927
  Transmission Date: 20111222
  Serious: Yes (Death, Hospitalization)
  Sender: FDA-Public Use
  Company Number: US-B.I. PHARMACEUTICALS,INC./RIDGEFIELD-2011-BP-14758BP

PATIENT
  Age: 51 Year
  Sex: Female

DRUGS (7)
  1. TRAMADOL HCL [Suspect]
  2. LASIX [Concomitant]
  3. ASPIRIN [Concomitant]
  4. PLAVIX [Concomitant]
  5. PRILOSEC [Suspect]
  6. ALLOPURINOL [Concomitant]
  7. PRADAXA [Suspect]
     Indication: ATRIAL FIBRILLATION
     Dosage: 300 MG

REACTIONS (6)
  - HAEMORRHAGE [None]
  - RENAL FAILURE [None]
  - ACIDOSIS [None]
  - TOXIC EPIDERMAL NECROLYSIS [None]
  - CARDIAC ARREST [None]
  - SEPSIS [None]
